FAERS Safety Report 21125094 (Version 1)
Quarter: 2022Q3

REPORT INFORMATION
  Report Type: Spontaneous
  Country: US (occurrence: US)
  Receive Date: 20220725
  Receipt Date: 20220725
  Transmission Date: 20221027
  Serious: No
  Sender: FDA-Public Use
  Company Number: US-TEVA-2022-US-2055094

PATIENT
  Age: 83 Year
  Sex: Female

DRUGS (3)
  1. PRAVASTATIN [Suspect]
     Active Substance: PRAVASTATIN
     Indication: Product used for unknown indication
     Route: 065
     Dates: start: 2005
  2. PRAVASTATIN [Suspect]
     Active Substance: PRAVASTATIN
     Route: 065
     Dates: start: 2005
  3. PRAVASTATIN [Suspect]
     Active Substance: PRAVASTATIN
     Dosage: TAKING HALF.
     Route: 065
     Dates: start: 2005

REACTIONS (3)
  - Flushing [Recovered/Resolved]
  - Fatigue [Recovered/Resolved]
  - Gait disturbance [Unknown]

NARRATIVE: CASE EVENT DATE: 20050101
